FAERS Safety Report 7658998-4 (Version None)
Quarter: 2011Q3

REPORT INFORMATION
  Report Type: 
  Country: None (occurrence: None)
  Receive Date: 20110805
  Receipt Date: 20110725
  Transmission Date: 20111222
  Serious: Yes (Hospitalization, Other)
  Sender: FDA-Public Use
  Company Number: CA-ELI_LILLY_AND_COMPANY-CA201107006456

PATIENT
  Sex: Male

DRUGS (10)
  1. ZYPREXA [Suspect]
     Indication: BIPOLAR DISORDER
     Dosage: 5 MG, EACH EVENING
  2. ZYPREXA [Suspect]
     Dosage: 5 MG, BID
  3. LORAZEPAM [Concomitant]
  4. DIVALPROEX SODIUM [Concomitant]
  5. CLONAZEPAM [Concomitant]
  6. ZYPREXA [Suspect]
     Dosage: 5 MG, TID
     Dates: start: 20010604
  7. ZYPREXA ZYDIS [Suspect]
     Indication: BIPOLAR DISORDER
     Dosage: 5 MG, UNK
  8. CELEXA [Concomitant]
  9. ZYPREXA [Suspect]
     Dosage: 12.5 MG, QD
  10. WELLBUTRIN SR [Concomitant]

REACTIONS (8)
  - HYPERTENSION [None]
  - BLOOD CHOLESTEROL INCREASED [None]
  - ANGINA UNSTABLE [None]
  - CORONARY ARTERY STENOSIS [None]
  - BRONCHITIS [None]
  - MYOCARDIAL INFARCTION [None]
  - DIABETES MELLITUS [None]
  - GASTROINTESTINAL HAEMORRHAGE [None]
